FAERS Safety Report 23276063 (Version 1)
Quarter: 2023Q4

REPORT INFORMATION
  Report Type: Spontaneous
  Country: CN (occurrence: CN)
  Receive Date: 20231208
  Receipt Date: 20231208
  Transmission Date: 20240110
  Serious: Yes (Hospitalization)
  Sender: FDA-Public Use
  Company Number: CN-MYLANLABS-2023M1129799

PATIENT
  Age: 17 Year
  Sex: Female
  Weight: 41 kg

DRUGS (3)
  1. ZOLOFT [Suspect]
     Active Substance: SERTRALINE HYDROCHLORIDE
     Indication: Emotional disorder
     Dosage: 50 MILLIGRAM, QD
     Route: 048
     Dates: start: 20231118, end: 20231120
  2. ARIPIPRAZOLE [Concomitant]
     Active Substance: ARIPIPRAZOLE
     Indication: Behaviour disorder
     Dosage: 2.5 MILLIGRAM, QD
     Route: 048
     Dates: start: 20231118, end: 20231120
  3. ARIPIPRAZOLE [Concomitant]
     Active Substance: ARIPIPRAZOLE
     Indication: Emotional disorder

REACTIONS (6)
  - Emotional disorder [Recovering/Resolving]
  - Tremor [Unknown]
  - Tethered oral tissue [Unknown]
  - Sleep disorder [Unknown]
  - Nausea [Unknown]
  - Vomiting [Unknown]

NARRATIVE: CASE EVENT DATE: 20231120
